FAERS Safety Report 14379182 (Version 2)
Quarter: 2018Q2

REPORT INFORMATION
  Report Type: Spontaneous
  Country: FR (occurrence: FR)
  Receive Date: 20180112
  Receipt Date: 20180604
  Transmission Date: 20180711
  Serious: Yes (Hospitalization)
  Sender: FDA-Public Use
  Company Number: FR-ROCHE-2053978

PATIENT
  Age: 73 Year
  Sex: Female
  Weight: 63 kg

DRUGS (3)
  1. ELOXATIN [Suspect]
     Active Substance: OXALIPLATIN
     Indication: COLON CANCER
     Dosage: 614 MG
     Route: 042
     Dates: start: 20171128
  2. ACEBUTOLOL [Suspect]
     Active Substance: ACEBUTOLOL
     Indication: HYPERTENSION
     Route: 048
     Dates: start: 20171201
  3. XELODA [Suspect]
     Active Substance: CAPECITABINE
     Indication: COLON CANCER
     Route: 048
     Dates: start: 20171129

REACTIONS (2)
  - Malaise [Recovered/Resolved]
  - Sinoatrial block [Recovered/Resolved]

NARRATIVE: CASE EVENT DATE: 20171129
